FAERS Safety Report 15475916 (Version 2)
Quarter: 2020Q2

REPORT INFORMATION
  Report Type: Spontaneous
  Country: FR (occurrence: FR)
  Receive Date: 20181009
  Receipt Date: 20200508
  Transmission Date: 20200713
  Serious: Yes (Other)
  Sender: FDA-Public Use
  Company Number: PHHY2018FR016336

PATIENT
  Age: 66 Year
  Sex: Female
  Weight: 68 kg

DRUGS (11)
  1. METFORMIN [Suspect]
     Active Substance: METFORMIN HYDROCHLORIDE
     Indication: TYPE 2 DIABETES MELLITUS
     Dosage: 2 ?G/L, QD
     Route: 048
  2. METFORMIN [Suspect]
     Active Substance: METFORMIN HYDROCHLORIDE
     Dosage: 2 DF, QD
     Route: 048
  3. PERINDOPRIL [Suspect]
     Active Substance: PERINDOPRIL
     Dosage: 1 DF, QD
     Route: 048
  4. SPECIAFOLDINE [Suspect]
     Active Substance: FOLIC ACID
     Dosage: 1 DF, QD
     Route: 048
  5. SPECIAFOLDINE [Suspect]
     Active Substance: FOLIC ACID
     Indication: ANAEMIA
     Dosage: 1 ?G/L, QD
     Route: 048
  6. TARDYFERON [Suspect]
     Active Substance: FERROUS SULFATE
     Indication: ANAEMIA
     Dosage: 1 ?G/L, QD
     Route: 048
  7. PERINDOPRIL [Suspect]
     Active Substance: PERINDOPRIL
     Indication: HYPERTENSION
     Dosage: 1 ?G/L, QD
     Route: 048
  8. FOSINOPRIL [Suspect]
     Active Substance: FOSINOPRIL
     Indication: PRODUCT USED FOR UNKNOWN INDICATION
     Route: 065
  9. REPAGLINIDE. [Suspect]
     Active Substance: REPAGLINIDE
     Indication: TYPE 2 DIABETES MELLITUS
     Dosage: 1 DF, QD
     Route: 048
  10. FOSINOPRIL [Suspect]
     Active Substance: FOSINOPRIL
     Dosage: UNK
     Route: 065
  11. TARDYFERON [Suspect]
     Active Substance: FERROUS SULFATE
     Dosage: 1 DF, QD
     Route: 048

REACTIONS (8)
  - Nausea [Recovering/Resolving]
  - Hypersensitivity [Recovering/Resolving]
  - Diabetes mellitus inadequate control [Unknown]
  - Diabetic metabolic decompensation [Unknown]
  - Off label use [Unknown]
  - Vomiting [Recovering/Resolving]
  - Abdominal pain [Recovering/Resolving]
  - Gastrointestinal disorder [Recovering/Resolving]

NARRATIVE: CASE EVENT DATE: 20160715
